FAERS Safety Report 15333793 (Version 1)
Quarter: 2018Q3

REPORT INFORMATION
  Report Type: Spontaneous
  Country: FR (occurrence: FR)
  Receive Date: 20180830
  Receipt Date: 20180830
  Transmission Date: 20181010
  Serious: Yes (Hospitalization)
  Sender: FDA-Public Use
  Company Number: FR-PFIZER INC-2018337240

PATIENT
  Age: 75 Year
  Sex: Male

DRUGS (1)
  1. SUTENT [Suspect]
     Active Substance: SUNITINIB MALATE
     Indication: METASTASES TO CENTRAL NERVOUS SYSTEM
     Dosage: 50 MG, UNK (FOR 12 DAYS)

REACTIONS (8)
  - Pyrexia [Unknown]
  - Weight decreased [Unknown]
  - Nausea [Unknown]
  - Tension headache [Unknown]
  - Pancreatitis [Unknown]
  - Skin exfoliation [Unknown]
  - Abdominal pain [Unknown]
  - Arthralgia [Unknown]
